FAERS Safety Report 7321893-4 (Version None)
Quarter: 2011Q1

REPORT INFORMATION
  Report Type: 
  Country: None (occurrence: None)
  Receive Date: 20110228
  Receipt Date: 20110224
  Transmission Date: 20110831
  Serious: Yes (Other)
  Sender: FDA-Public Use
  Company Number: US-PFIZER INC-2011041299

PATIENT
  Sex: Female
  Weight: 73.469 kg

DRUGS (5)
  1. TOVIAZ [Suspect]
     Indication: NERVOUS SYSTEM DISORDER
  2. VITAMIN B [Concomitant]
     Dosage: UNK
  3. CALCIUM [Concomitant]
     Dosage: UNK
  4. TOVIAZ [Suspect]
     Indication: URINARY INCONTINENCE
     Dosage: 4 MG, DAILY
     Route: 048
     Dates: start: 20110130
  5. VITAMIN D [Concomitant]
     Dosage: UNK

REACTIONS (3)
  - WEIGHT INCREASED [None]
  - SWELLING [None]
  - DRUG INEFFECTIVE [None]
